FAERS Safety Report 8388726-9 (Version None)
Quarter: 2012Q2

REPORT INFORMATION
  Report Type: 
  Country: None (occurrence: None)
  Receive Date: 20120527
  Receipt Date: 20120523
  Transmission Date: 20120825
  Serious: Yes (Hospitalization)
  Sender: FDA-Public Use
  Company Number: US-AMGEN-USASP2012032161

PATIENT
  Age: 33 Year
  Sex: Female
  Weight: 80 kg

DRUGS (10)
  1. BEVACIZUMAB [Suspect]
     Indication: BREAST CANCER
     Dosage: 10 MG/KG, UNK
     Route: 042
     Dates: start: 20111108
  2. PEGFILGRASTIM [Suspect]
     Indication: CHEMOTHERAPY
     Dosage: 24 MG, UNK
     Dates: start: 20120321
  3. PACLITAXEL [Suspect]
     Indication: BREAST CANCER
     Dosage: 80 MG/M2, UNK
     Route: 042
     Dates: start: 20111108
  4. PROCHLORPERAZINE [Concomitant]
  5. ONDANSETRON [Concomitant]
  6. IBUPROFEN [Concomitant]
  7. DOXORUBICIN HCL [Suspect]
     Indication: BREAST CANCER
     Dosage: 60 MG/M2, UNK
     Route: 042
     Dates: start: 20111108
  8. CYCLOPHOSPHAMIDE [Suspect]
     Indication: BREAST CANCER
     Dosage: 600 MG/M2, UNK
     Route: 042
     Dates: start: 20111108
  9. CARBOPLATIN [Suspect]
     Indication: BREAST CANCER
     Dosage: UNK
     Route: 042
     Dates: start: 20111108
  10. IMODIUM [Concomitant]

REACTIONS (3)
  - FEBRILE NEUTROPENIA [None]
  - PLATELET COUNT DECREASED [None]
  - ANAEMIA [None]
